FAERS Safety Report 22273175 (Version 1)
Quarter: 2023Q2

REPORT INFORMATION
  Report Type: Report from Study
  Country: FR (occurrence: FR)
  Receive Date: 20230502
  Receipt Date: 20230502
  Transmission Date: 20230721
  Serious: Yes (Other)
  Sender: FDA-Public Use
  Company Number: FR-MYLANLABS-2023M1045891

PATIENT
  Sex: Female

DRUGS (1)
  1. ZOLEDRONIC ACID [Suspect]
     Active Substance: ZOLEDRONIC ACID
     Indication: Prophylaxis
     Dosage: UNK, RECEIVED 3 INFUSIONS
     Route: 042

REACTIONS (1)
  - Drug ineffective [Unknown]
